FAERS Safety Report 18179200 (Version 1)
Quarter: 2020Q3

REPORT INFORMATION
  Report Type: Spontaneous
  Country: SE (occurrence: SE)
  Receive Date: 20200820
  Receipt Date: 20200820
  Transmission Date: 20201103
  Serious: Yes (Hospitalization)
  Sender: FDA-Public Use
  Company Number: SE-PURDUE-USA-2020-0162919

PATIENT
  Age: 12 Day
  Sex: Female

DRUGS (2)
  1. METOPROLOL. [Concomitant]
     Active Substance: METOPROLOL
     Dosage: 50 MG, DAILY
     Route: 063
  2. NORSPAN [Suspect]
     Active Substance: BUPRENORPHINE
     Indication: PAIN
     Dosage: 1 DF, WEEKLY
     Route: 063

REACTIONS (5)
  - Weight gain poor [Recovered/Resolved]
  - Poor feeding infant [Recovered/Resolved]
  - Failure to thrive [Recovered/Resolved]
  - Maternal exposure during breast feeding [Recovered/Resolved]
  - Foetal exposure during pregnancy [Recovered/Resolved]

NARRATIVE: CASE EVENT DATE: 202006
